FAERS Safety Report 6014023-2 (Version None)
Quarter: 2008Q4

REPORT INFORMATION
  Report Type: 
  Country: None (occurrence: None)
  Receive Date: 20081219
  Receipt Date: 20080117
  Transmission Date: 20090506
  Serious: No
  Sender: FDA-Public Use
  Company Number: A0678886A

PATIENT
  Age: 86 Year
  Sex: Male
  Weight: 73.6 kg

DRUGS (7)
  1. AVODART [Suspect]
     Route: 048
     Dates: start: 20061101, end: 20070629
  2. TRIAMTERENE AND HYDROCHLOROTHIAZIDE [Concomitant]
  3. TERAZOSIN HCL [Concomitant]
  4. CENTRUM SILVER [Concomitant]
  5. TYLENOL (CAPLET) [Concomitant]
  6. POTASSIUM CHLORIDE [Concomitant]
  7. LEXAPRO [Concomitant]

REACTIONS (2)
  - BLISTER [None]
  - SKIN LESION [None]
